FAERS Safety Report 8804935 (Version 2)
Quarter: 2012Q4

REPORT INFORMATION
  Report Type: 
  Country: US (occurrence: US)
  Receive Date: 20120924
  Receipt Date: 20121122
  Transmission Date: 20130627
  Serious: Yes (Death, Other)
  Sender: FDA-Public Use
  Company Number: US-ROCHE-1128553

PATIENT
  Age: 66 Year
  Sex: Male

DRUGS (2)
  1. AVASTIN [Suspect]
     Indication: BRAIN NEOPLASM MALIGNANT
     Route: 042
     Dates: start: 20070727, end: 20070912
  2. CARBOPLATIN [Concomitant]

REACTIONS (6)
  - Neoplasm progression [Fatal]
  - Erythema [Recovered/Resolved]
  - Tenderness [Recovered/Resolved]
  - Oedema [Recovered/Resolved]
  - Haemorrhage [Unknown]
  - Hemiplegia [Unknown]
